FAERS Safety Report 18100078 (Version 15)
Quarter: 2022Q3

REPORT INFORMATION
  Report Type: Spontaneous
  Country: CN (occurrence: CN)
  Receive Date: 20200731
  Receipt Date: 20220923
  Transmission Date: 20221027
  Serious: Yes (Hospitalization, Other)
  Sender: FDA-Public Use
  Company Number: CN-VIIV HEALTHCARE ULC-CN2020APC139585

PATIENT

DRUGS (8)
  1. TIVICAY [Suspect]
     Active Substance: DOLUTEGRAVIR SODIUM
     Indication: HIV infection
     Dosage: 1 DF, QD, TABLET, 50 MG
     Route: 048
     Dates: start: 20200722, end: 202201
  2. TIVICAY [Suspect]
     Active Substance: DOLUTEGRAVIR SODIUM
     Dosage: 1 DF, QD
     Route: 048
     Dates: start: 20220215
  3. ZIDOVUDINE [Suspect]
     Active Substance: ZIDOVUDINE
     Indication: HIV infection
     Dosage: 1 DF(TABLET), BID
     Route: 048
     Dates: start: 20200722
  4. DOVATO [Suspect]
     Active Substance: DOLUTEGRAVIR SODIUM\LAMIVUDINE
     Indication: HIV infection
     Dosage: 1 DF, QD
     Route: 048
  5. LAMIVUDINE [Suspect]
     Active Substance: LAMIVUDINE
     Indication: HIV infection
     Dosage: 1 DF, QD(TABLET)
     Dates: start: 20200722
  6. METHYLCOBALAMIN [Suspect]
     Active Substance: METHYLCOBALAMIN
     Indication: Myalgia
     Dosage: 1 DF, QD
     Dates: start: 20211009
  7. METHYLCOBALAMIN [Suspect]
     Active Substance: METHYLCOBALAMIN
     Dosage: 1 DF, QOD
     Dates: start: 20211009
  8. METHYLCOBALAMIN [Suspect]
     Active Substance: METHYLCOBALAMIN
     Dosage: UNK UNK, Z (ONCE HALF A MONTH)

REACTIONS (84)
  - Pneumonia [Unknown]
  - Asthenia [Not Recovered/Not Resolved]
  - Back pain [Unknown]
  - Marasmus [Recovering/Resolving]
  - Pain [Unknown]
  - Lung disorder [Unknown]
  - Decreased appetite [Unknown]
  - Insomnia [Not Recovered/Not Resolved]
  - Hypoaesthesia [Recovered/Resolved]
  - Depression [Unknown]
  - Myalgia [Recovered/Resolved]
  - Hospitalisation [Unknown]
  - Quality of life decreased [Unknown]
  - Disability [Unknown]
  - Suicidal ideation [Unknown]
  - Loss of consciousness [Unknown]
  - Suicide attempt [Unknown]
  - Cataract [Unknown]
  - Hepatitis B [Unknown]
  - Cataract operation [Unknown]
  - Blood HIV RNA increased [Recovered/Resolved]
  - Dry mouth [Recovered/Resolved]
  - Prostatitis [Unknown]
  - Sputum increased [Unknown]
  - Hypotension [Unknown]
  - Muscular weakness [Not Recovered/Not Resolved]
  - Sputum culture positive [Unknown]
  - Pneumonitis [Unknown]
  - Dysuria [Recovered/Resolved]
  - Headache [Unknown]
  - Pyrexia [Unknown]
  - Weight increased [Unknown]
  - Gastric dilatation [Unknown]
  - Head discomfort [Unknown]
  - Gait disturbance [Not Recovered/Not Resolved]
  - Anaemia [Unknown]
  - Pruritus genital [Recovered/Resolved]
  - Joint swelling [Not Recovered/Not Resolved]
  - Osteoarthritis [Not Recovered/Not Resolved]
  - Dysphoria [Not Recovered/Not Resolved]
  - Foot fracture [Not Recovered/Not Resolved]
  - Osteoporosis [Not Recovered/Not Resolved]
  - Contusion [Not Recovered/Not Resolved]
  - Pain in extremity [Not Recovered/Not Resolved]
  - Condition aggravated [Unknown]
  - Drooling [Unknown]
  - Gastric disorder [Unknown]
  - Hyperhidrosis [Not Recovered/Not Resolved]
  - Dry eye [Unknown]
  - Eye pruritus [Unknown]
  - Nervous system disorder [Unknown]
  - Gastritis [Unknown]
  - Constipation [Not Recovered/Not Resolved]
  - Weight decreased [Not Recovered/Not Resolved]
  - Depressed mood [Unknown]
  - Dizziness [Unknown]
  - Abdominal discomfort [Unknown]
  - Oedema peripheral [Unknown]
  - Injection site induration [Unknown]
  - Testicular disorder [Unknown]
  - Urinary tract disorder [Unknown]
  - Rash [Unknown]
  - Malaise [Unknown]
  - Bone density decreased [Unknown]
  - Arthralgia [Unknown]
  - Arthropathy [Unknown]
  - Dysstasia [Unknown]
  - Platelet count decreased [Unknown]
  - Musculoskeletal disorder [Unknown]
  - Malabsorption [Unknown]
  - Hepatic function abnormal [Unknown]
  - Alopecia [Not Recovered/Not Resolved]
  - Rash macular [Not Recovered/Not Resolved]
  - CD4 lymphocytes decreased [Unknown]
  - Abdominal neoplasm [Unknown]
  - Pulmonary mass [Unknown]
  - Abdominal distension [Unknown]
  - Functional gastrointestinal disorder [Unknown]
  - Gastrointestinal disorder [Unknown]
  - Abdominal pain upper [Not Recovered/Not Resolved]
  - Back pain [Unknown]
  - Drug ineffective [Unknown]
  - Treatment noncompliance [Unknown]
  - Product dose omission issue [Recovered/Resolved]

NARRATIVE: CASE EVENT DATE: 20200722
